FAERS Safety Report 12834918 (Version 1)
Quarter: 2016Q4

REPORT INFORMATION
  Report Type: Spontaneous
  Country: US (occurrence: US)
  Receive Date: 20161010
  Receipt Date: 20161010
  Transmission Date: 20170207
  Serious: No
  Sender: FDA-Public Use
  Company Number: US-EPIC PHARMA LLC-2016EPC00013

PATIENT
  Sex: Female

DRUGS (1)
  1. OXYCODONE HYDROCHLORIDE. [Suspect]
     Active Substance: OXYCODONE HYDROCHLORIDE
     Indication: PAIN
     Dosage: UNK
     Dates: start: 201606

REACTIONS (3)
  - Drug ineffective [Unknown]
  - Product substitution issue [None]
  - Nausea [Unknown]

NARRATIVE: CASE EVENT DATE: 2016
